FAERS Safety Report 7156527-5 (Version None)
Quarter: 2010Q4

REPORT INFORMATION
  Report Type: 
  Country: None (occurrence: None)
  Receive Date: 20101214
  Receipt Date: 20100219
  Transmission Date: 20110411
  Serious: No
  Sender: FDA-Public Use
  Company Number: US-ASTRAZENECA-2009SE28062

PATIENT
  Age: 79 Year
  Sex: Male

DRUGS (1)
  1. CRESTOR [Suspect]
     Indication: BLOOD CHOLESTEROL INCREASED
     Dosage: TOTAL DAILY: 5 MG; 3 TIMES PER WEEK
     Route: 048

REACTIONS (3)
  - CONFUSIONAL STATE [None]
  - DEMENTIA [None]
  - HALLUCINATION, VISUAL [None]
